FAERS Safety Report 8499095-8 (Version None)
Quarter: 2012Q2

REPORT INFORMATION
  Report Type: 
  Country: None (occurrence: None)
  Receive Date: 20120405
  Receipt Date: 20100215
  Transmission Date: 20120825
  Serious: Yes (Other)
  Sender: FDA-Public Use
  Company Number: PHHY2009US54424

PATIENT
  Age: 52 Year
  Sex: Female
  Weight: 73.7 kg

DRUGS (1)
  1. RECLAST [Suspect]
     Indication: OSTEOPOROTIC FRACTURE
     Dosage: 5 MG/100 ML, INFUSION
     Dates: start: 20091128, end: 20091128

REACTIONS (4)
  - BLOOD GLUCOSE INCREASED [None]
  - PAIN IN EXTREMITY [None]
  - ARTHRALGIA [None]
  - ABASIA [None]
